FAERS Safety Report 12308683 (Version 3)
Quarter: 2016Q2

REPORT INFORMATION
  Report Type: Spontaneous
  Country: US (occurrence: US)
  Receive Date: 20160427
  Receipt Date: 20160511
  Transmission Date: 20160815
  Serious: Yes (Hospitalization)
  Sender: FDA-Public Use
  Company Number: US-HOSPIRA-3259897

PATIENT
  Age: 76 Year
  Sex: Male
  Weight: 75 kg

DRUGS (19)
  1. CALCIUM PHOSPHATE W/CALCIUM SODIUM LACTATE/ER [Concomitant]
     Indication: VITAMIN SUPPLEMENTATION
     Dosage: DAILY
     Route: 048
  2. NORVASC [Concomitant]
     Active Substance: AMLODIPINE BESYLATE
     Indication: HYPERTENSION
     Dosage: DAILY
     Route: 048
  3. TYLENOL                            /00435101/ [Concomitant]
     Indication: PREMEDICATION
     Route: 048
     Dates: start: 20121031
  4. TYLENOL                            /00435101/ [Concomitant]
     Indication: PREMEDICATION
     Route: 048
     Dates: start: 20121109
  5. FISH OIL [Concomitant]
     Active Substance: FISH OIL
     Indication: HYPERTENSION
     Dosage: 2000-3000 IU DAILY
     Route: 048
  6. ENALAPRIL [Concomitant]
     Active Substance: ENALAPRIL
     Indication: HYPERTENSION
     Route: 048
  7. GLUCOSAMINE CHONDROITIN            /01430901/ [Concomitant]
     Indication: PROPHYLAXIS
     Dosage: 1500 CAPSULE, BID
     Route: 048
  8. AVODART [Concomitant]
     Active Substance: DUTASTERIDE
     Indication: BENIGN PROSTATIC HYPERPLASIA
     Dosage: DAILY
     Route: 048
  9. TYLENOL                            /00435101/ [Concomitant]
     Indication: PREMEDICATION
     Dates: start: 20121212
  10. ALLOPURINOL. [Concomitant]
     Active Substance: ALLOPURINOL
     Indication: GOUT
     Dosage: DAILY
     Route: 048
  11. INVESTIGATIONAL DRUG [Suspect]
     Active Substance: INVESTIGATIONAL PRODUCT
     Indication: MYELODYSPLASTIC SYNDROME
     Dosage: CONTINUOUS
     Route: 048
     Dates: start: 20121102, end: 20130116
  12. PREDNISONE. [Concomitant]
     Active Substance: PREDNISONE
     Indication: GOUT
     Dosage: DAILY
     Route: 048
     Dates: start: 20121026
  13. CYTARABINE. [Suspect]
     Active Substance: CYTARABINE
     Indication: MYELODYSPLASTIC SYNDROME
     Dosage: MORNING AND EVENING; 12 HOURS APART; DAYS 1-10 OF EACH 28 DAY CYCLE
     Route: 058
     Dates: start: 20121031, end: 20130104
  14. COLCRYS [Concomitant]
     Active Substance: COLCHICINE
     Indication: GOUT
     Dosage: DAILY
     Route: 048
     Dates: start: 20121026
  15. SODIUM CHLORIDE. [Concomitant]
     Active Substance: SODIUM CHLORIDE
     Indication: HYPOTENSION
     Route: 042
     Dates: start: 20121212, end: 20121212
  16. BENADRYL                           /00647601/ [Concomitant]
     Active Substance: CAMPHOR\DIPHENHYDRAMINE\ZINC OXIDE
     Indication: PREMEDICATION
     Route: 048
     Dates: start: 20121031
  17. CLONIDINE. [Concomitant]
     Active Substance: CLONIDINE
     Indication: HYPERTENSION
     Dosage: 0.3-0.4 MG DAILY
     Route: 048
  18. PEPCID                             /06376601/ [Concomitant]
     Indication: GASTROOESOPHAGEAL REFLUX DISEASE
     Dosage: DAILY
     Route: 048
     Dates: start: 20121026
  19. WELCHOL [Concomitant]
     Active Substance: COLESEVELAM HYDROCHLORIDE
     Indication: IRRITABLE BOWEL SYNDROME
     Route: 048

REACTIONS (8)
  - Neurodegenerative disorder [Unknown]
  - Adrenal insufficiency [Unknown]
  - Dysphagia [Unknown]
  - Dehydration [Recovered/Resolved]
  - Orthostatic hypotension [Unknown]
  - Failure to thrive [Unknown]
  - Asthenia [Unknown]
  - Arthralgia [Unknown]

NARRATIVE: CASE EVENT DATE: 20130117
